FAERS Safety Report 17419429 (Version 1)
Quarter: 2020Q1

REPORT INFORMATION
  Report Type: Spontaneous
  Country: US (occurrence: US)
  Receive Date: 20200214
  Receipt Date: 20200214
  Transmission Date: 20200409
  Serious: Yes (Hospitalization)
  Sender: FDA-Public Use
  Company Number: None

PATIENT
  Age: 56 Year
  Sex: Female

DRUGS (4)
  1. WELCHOL, DIOVAN, METFORMIN, AMOXICILLIN CLAVANUATE, SYNTHROID, TOPROL [Concomitant]
  2. METHOTREXATE, LOTEMAX, HYDROCHLOROTHIAZIDE, LEVOTHYROXINE [Concomitant]
  3. LOSARTAN POTASSIUM, CYCLOBENZAPRINE, COLESEVELAM, METOPROLOL SUCCINATE [Concomitant]
  4. COSENTYX [Suspect]
     Active Substance: SECUKINUMAB
     Indication: PSORIATIC ARTHROPATHY
     Dosage: ?          OTHER FREQUENCY:MONTHLY;?
     Route: 058
     Dates: start: 20170809

REACTIONS (1)
  - Conjunctivitis [None]

NARRATIVE: CASE EVENT DATE: 20191231
